FAERS Safety Report 18979250 (Version 8)
Quarter: 2022Q1

REPORT INFORMATION
  Report Type: Report from Study
  Country: US (occurrence: US)
  Receive Date: 20210308
  Receipt Date: 20220211
  Transmission Date: 20220423
  Serious: Yes (Other)
  Sender: FDA-Public Use
  Company Number: NVSC2021US051736

PATIENT
  Age: 58 Year
  Sex: Male

DRUGS (2)
  1. ENTRESTO [Suspect]
     Active Substance: SACUBITRIL\VALSARTAN
     Indication: Product used for unknown indication
     Dosage: 50 MG, BID (24/26 MG)
     Route: 048
     Dates: start: 20210220
  2. ENTRESTO [Suspect]
     Active Substance: SACUBITRIL\VALSARTAN
     Dosage: 100 MG, BID (49/51 MG)
     Route: 048

REACTIONS (7)
  - Cardiac dysfunction [Unknown]
  - Dry skin [Unknown]
  - Skin haemorrhage [Unknown]
  - Chest pain [Unknown]
  - Hernia [Unknown]
  - Weight increased [Unknown]
  - Rash [Unknown]

NARRATIVE: CASE EVENT DATE: 20210225
